FAERS Safety Report 7608387-3 (Version None)
Quarter: 2011Q3

REPORT INFORMATION
  Report Type: 
  Country: None (occurrence: None)
  Receive Date: 20110714
  Receipt Date: 20110706
  Transmission Date: 20111222
  Serious: Yes (Hospitalization)
  Sender: FDA-Public Use
  Company Number: AU-JNJFOC-20110703282

PATIENT
  Sex: Male
  Weight: 70 kg

DRUGS (2)
  1. INVEGA SUSTENNA [Suspect]
     Indication: SCHIZOPHRENIA
     Route: 030
     Dates: start: 20110321
  2. ESCITALOPRAM [Suspect]
     Indication: SCHIZOPHRENIA
     Dates: start: 20110624

REACTIONS (1)
  - MAJOR DEPRESSION [None]
